FAERS Safety Report 23227410 (Version 1)
Quarter: 2023Q4

REPORT INFORMATION
  Report Type: Spontaneous
  Country: US (occurrence: US)
  Receive Date: 20231124
  Receipt Date: 20231124
  Transmission Date: 20240109
  Serious: No
  Sender: FDA-Public Use
  Company Number: US-TEVA-2023-US-2949151

PATIENT
  Age: 74 Year
  Sex: Female

DRUGS (1)
  1. CLONAZEPAM [Suspect]
     Active Substance: CLONAZEPAM
     Indication: Product used for unknown indication
     Dosage: 0.5 MG

REACTIONS (6)
  - Hypersensitivity [Unknown]
  - Flushing [Unknown]
  - Vomiting [Unknown]
  - Generalised oedema [Unknown]
  - Illness [Unknown]
  - Allergic reaction to excipient [Unknown]
